FAERS Safety Report 5123907-9 (Version None)
Quarter: 2006Q3

REPORT INFORMATION
  Report Type: 
  Country: None (occurrence: None)
  Receive Date: 20060811
  Receipt Date: 20060626
  Transmission Date: 20061208
  Serious: Yes (Other)
  Sender: FDA-Public Use
  Company Number: 200612513US

PATIENT
  Age: 31 Year
  Sex: Female
  Weight: 63.63 kg

DRUGS (4)
  1. APIDRA [Suspect]
     Indication: DIABETES MELLITUS INSULIN-DEPENDENT
     Dates: start: 20060101
  2. INSULIN [Suspect]
  3. INSULIN [Concomitant]
  4. SYNTHROID [Concomitant]

REACTIONS (2)
  - BLOOD GLUCOSE DECREASED [None]
  - HYPERGLYCAEMIA [None]
